FAERS Safety Report 6467954-3 (Version None)
Quarter: 2009Q4

REPORT INFORMATION
  Report Type: 
  Country: None (occurrence: None)
  Receive Date: 20091119
  Receipt Date: 20090805
  Transmission Date: 20100525
  Serious: No
  Sender: FDA-Public Use
  Company Number: WAES 0908USA00856

PATIENT
  Age: 74 Year
  Sex: Female

DRUGS (6)
  1. JANUVIA [Suspect]
     Indication: DIABETES MELLITUS
     Dosage: 100 MG/DAILY/PO
     Route: 048
     Dates: start: 20080627
  2. METFORMIN HCL [Suspect]
  3. ALENDRONAT [Concomitant]
  4. LASIX [Concomitant]
  5. LIPITOR [Concomitant]
  6. GLYBURIDE [Concomitant]

REACTIONS (2)
  - MEDICATION RESIDUE [None]
  - VOMITING [None]
